APPROVED DRUG PRODUCT: POTASSIUM CHLORIDE 20MEQ IN DEXTROSE 5% AND LACTATED RINGER'S IN PLASTIC CONTAINER
Active Ingredient: CALCIUM CHLORIDE; DEXTROSE; POTASSIUM CHLORIDE; SODIUM CHLORIDE; SODIUM LACTATE
Strength: 20MG/100ML;5GM/100ML;328MG/100ML;600MG/100ML;310MG/100ML
Dosage Form/Route: INJECTABLE;INJECTION
Application: N019685 | Product #008
Applicant: OTSUKA ICU MEDICAL LLC
Approved: Oct 17, 1988 | RLD: Yes | RS: No | Type: DISCN